FAERS Safety Report 8553995-9 (Version None)
Quarter: 2012Q3

REPORT INFORMATION
  Report Type: 
  Country: None (occurrence: None)
  Receive Date: 20120731
  Receipt Date: 20120716
  Transmission Date: 20120928
  Serious: No
  Sender: FDA-Public Use
  Company Number: US-ASTRAZENECA-2010SE04720

PATIENT
  Age: 84 Year
  Sex: Female
  Weight: 77.1 kg

DRUGS (9)
  1. CRESTOR [Suspect]
     Indication: BLOOD CHOLESTEROL INCREASED
     Route: 048
     Dates: start: 20091228, end: 20100118
  2. DIOVAN [Concomitant]
  3. PRADAXA [Concomitant]
  4. AMIODARONE HCL [Concomitant]
  5. BYSTOLIC [Concomitant]
  6. CRESTOR [Suspect]
     Route: 048
     Dates: end: 20120101
  7. CRESTOR [Suspect]
     Route: 048
     Dates: start: 20120301
  8. COUMADIN [Concomitant]
  9. LIPITOR [Concomitant]

REACTIONS (7)
  - HEADACHE [None]
  - PAIN IN EXTREMITY [None]
  - MYALGIA [None]
  - OFF LABEL USE [None]
  - ABDOMINAL PAIN [None]
  - DIARRHOEA [None]
  - FEELING ABNORMAL [None]
